FAERS Safety Report 18164315 (Version 2)
Quarter: 2020Q3

REPORT INFORMATION
  Report Type: Spontaneous
  Country: DE (occurrence: DE)
  Receive Date: 20200818
  Receipt Date: 20200820
  Transmission Date: 20201103
  Serious: Yes (Hospitalization)
  Sender: FDA-Public Use
  Company Number: DE-PFIZER INC-2020318081

PATIENT
  Age: 71 Year
  Sex: Male

DRUGS (7)
  1. RAMIPRIL. [Suspect]
     Active Substance: RAMIPRIL
     Dosage: 5 MG, 2X/DAY (5 MG, 1?0?1?0), ONCE IN 12 HOURS
     Route: 048
  2. TORASEMIDE [Suspect]
     Active Substance: TORSEMIDE
     Dosage: 10 MG, 2X/DAY (10 MG, 0.5?0?0.5?0), ONCE IN 12 HOURS
     Route: 048
  3. LERCANIDIPINE [LERCANIDIPINE HYDROCHLORIDE] [Concomitant]
     Active Substance: LERCANIDIPINE HYDROCHLORIDE
     Dosage: 10 MG (10 MG, 0?0?1?0)
     Route: 048
  4. INEGY [Suspect]
     Active Substance: EZETIMIBE\SIMVASTATIN
     Dosage: UNK, 1X/DAY (10|40 MG, 0?0?1?0)
     Route: 048
  5. ACETYLSALICYLIC ACID [Concomitant]
     Active Substance: ASPIRIN
     Dosage: 100 MG (100 MG, 1?0?0?0)
     Route: 048
  6. BISOPROLOL [Concomitant]
     Active Substance: BISOPROLOL
     Dosage: 2.5 MG, QD (2.5 MG, 1?0?0?0,)
     Route: 048
  7. XIPAMIDE [Suspect]
     Active Substance: XIPAMIDE
     Dosage: 40 MG, 1X/DAY (40 MG, 1?0?0?0)
     Route: 048

REACTIONS (4)
  - Dehydration [Unknown]
  - Weight decreased [Unknown]
  - Thirst [Unknown]
  - Diarrhoea [Unknown]
